FAERS Safety Report 10165969 (Version 1)
Quarter: 2014Q2

REPORT INFORMATION
  Report Type: Spontaneous
  Country: US (occurrence: US)
  Receive Date: 20140511
  Receipt Date: 20140511
  Transmission Date: 20141212
  Serious: No
  Sender: FDA-Public Use
  Company Number: US-HORIZON-DUE-0029-2014

PATIENT
  Sex: Female

DRUGS (4)
  1. DUEXIS [Suspect]
     Indication: PAIN
     Dates: start: 20140410
  2. KLONOPIN [Concomitant]
  3. REMERON [Concomitant]
  4. SYNTHROID [Concomitant]

REACTIONS (3)
  - Nausea [Not Recovered/Not Resolved]
  - Abdominal pain [Not Recovered/Not Resolved]
  - Constipation [Not Recovered/Not Resolved]
